FAERS Safety Report 7953075-7 (Version None)
Quarter: 2011Q4

REPORT INFORMATION
  Report Type: 
  Country: None (occurrence: None)
  Receive Date: 20111201
  Receipt Date: 20111129
  Transmission Date: 20120403
  Serious: Yes (Other)
  Sender: FDA-Public Use
  Company Number: DE-AMGEN-DEUSP2011053677

PATIENT
  Sex: Male

DRUGS (1)
  1. XGEVA [Suspect]
     Indication: BONE SARCOMA
     Dosage: UNK

REACTIONS (2)
  - BLOOD COUNT ABNORMAL [None]
  - NEUTROPENIA [None]
